FAERS Safety Report 23228881 (Version 1)
Quarter: 2023Q4

REPORT INFORMATION
  Report Type: Spontaneous
  Country: US (occurrence: None)
  Receive Date: 20231126
  Receipt Date: 20231126
  Transmission Date: 20240110
  Serious: No
  Sender: FDA-Public Use
  Company Number: US-ROCHE-3209256

PATIENT
  Age: 35 Year
  Sex: Female
  Weight: 49.9 kg

DRUGS (10)
  1. TRASTUZUMAB [Suspect]
     Active Substance: TRASTUZUMAB
     Indication: Breast cancer
     Route: 041
  2. PERTUZUMAB [Suspect]
     Active Substance: PERTUZUMAB
     Indication: Breast cancer
     Route: 042
  3. PHESGO [Suspect]
     Active Substance: HYALURONIDASE-ZZXF\PERTUZUMAB\TRASTUZUMAB
     Indication: Breast cancer
     Dosage: LOADING DOSE
     Route: 058
     Dates: start: 20220310
  4. PHESGO [Suspect]
     Active Substance: HYALURONIDASE-ZZXF\PERTUZUMAB\TRASTUZUMAB
     Dosage: DOSE RECEIVED -28/APR/2022?MAINTAINANCE  DOSE
     Route: 058
     Dates: start: 20220407
  5. PHESGO [Suspect]
     Active Substance: HYALURONIDASE-ZZXF\PERTUZUMAB\TRASTUZUMAB
     Dosage: DOSE RECEIVED - 12/JUL/2022?LOADING  DOSE
     Route: 058
     Dates: start: 20220613
  6. PHESGO [Suspect]
     Active Substance: HYALURONIDASE-ZZXF\PERTUZUMAB\TRASTUZUMAB
     Dosage: MAINTENANCE DOSE
     Route: 058
     Dates: start: 20220823
  7. PHESGO [Suspect]
     Active Substance: HYALURONIDASE-ZZXF\PERTUZUMAB\TRASTUZUMAB
     Dosage: MAINTENANCE DOSE
     Route: 058
     Dates: start: 20220913
  8. ANASTROZOLE [Concomitant]
     Active Substance: ANASTROZOLE
  9. LUPRON [Concomitant]
     Active Substance: LEUPROLIDE ACETATE
  10. VITAMIN C [Concomitant]
     Active Substance: ASCORBIC ACID

REACTIONS (3)
  - Skin lesion [Recovered/Resolved]
  - Alopecia [Not Recovered/Not Resolved]
  - Product dose omission issue [Unknown]
